FAERS Safety Report 4753444-2 (Version None)
Quarter: 2005Q3

REPORT INFORMATION
  Report Type: 
  Country: None (occurrence: None)
  Receive Date: 20050826
  Receipt Date: 20050816
  Transmission Date: 20060218
  Serious: Yes (Other)
  Sender: FDA-Public Use
  Company Number: JP-ROCHE-414327

PATIENT
  Age: 55 Year
  Sex: Female

DRUGS (2)
  1. NICARDIPINE HCL [Suspect]
     Indication: DRUG USE FOR UNKNOWN INDICATION
     Route: 048
     Dates: start: 20010615
  2. STRONGER NEO-MINOPHAGEN C [Suspect]
     Indication: HEPATITIS ACUTE
     Route: 042

REACTIONS (2)
  - HEPATITIS ACUTE [None]
  - HYPOAESTHESIA ORAL [None]
